FAERS Safety Report 4715442-4 (Version None)
Quarter: 2005Q3

REPORT INFORMATION
  Report Type: 
  Country: None (occurrence: None)
  Receive Date: 20050713
  Receipt Date: 20050630
  Transmission Date: 20060218
  Serious: Yes (Hospitalization, Other)
  Sender: FDA-Public Use
  Company Number: 2005077566

PATIENT
  Age: 84 Year
  Sex: Female
  Weight: 45.3597 kg

DRUGS (10)
  1. LIPITOR [Suspect]
     Indication: AORTIC VALVE DISEASE
     Dosage: 10 MG (10 MG, 1 IN 1D), ORAL
     Route: 048
     Dates: start: 20041101, end: 20050516
  2. LIPITOR [Suspect]
     Indication: BLOOD CHOLESTEROL INCREASED
     Dosage: 10 MG (10 MG, 1 IN 1D), ORAL
     Route: 048
     Dates: start: 20041101, end: 20050516
  3. FOSAMAX [Concomitant]
  4. CALCIUM (CALCIUM) [Concomitant]
  5. LASIX [Concomitant]
  6. ZESTRIL [Concomitant]
  7. LOPRESSOR [Concomitant]
  8. POTASSIUM (POTASSIUM) [Concomitant]
  9. PROTONIX [Concomitant]
  10. IRON (IRON) [Concomitant]

REACTIONS (8)
  - ASTHENIA [None]
  - DIFFICULTY IN WALKING [None]
  - DYSSTASIA [None]
  - ENDOCARDITIS BACTERIAL [None]
  - MUSCULAR WEAKNESS [None]
  - MYALGIA [None]
  - SLEEP DISORDER [None]
  - SUBACUTE ENDOCARDITIS [None]
